FAERS Safety Report 10541063 (Version 2)
Quarter: 2014Q4

REPORT INFORMATION
  Report Type: Report from Study
  Country: DE (occurrence: TR)
  Receive Date: 20141024
  Receipt Date: 20141203
  Transmission Date: 20150529
  Serious: Yes (Death)
  Sender: FDA-Public Use
  Company Number: DE-ACTELION-A-US2014-107121

PATIENT
  Age: 53 Year
  Sex: Female
  Weight: 74 kg

DRUGS (1)
  1. VENTAVIS [Suspect]
     Active Substance: ILOPROST
     Indication: PULMONARY HYPERTENSION
     Dosage: 20 MG, 6ID
     Route: 055
     Dates: start: 20120201, end: 20141007

REACTIONS (1)
  - Death [Fatal]

NARRATIVE: CASE EVENT DATE: 20141007
